FAERS Safety Report 23596899 (Version 1)
Quarter: 2024Q1

REPORT INFORMATION
  Report Type: Spontaneous
  Country: US (occurrence: US)
  Receive Date: 20240305
  Receipt Date: 20240305
  Transmission Date: 20240410
  Serious: Yes (Hospitalization, Other)
  Sender: FDA-Public Use
  Company Number: US-MLMSERVICE-20231213-4719960-1

PATIENT

DRUGS (12)
  1. LITHIUM [Interacting]
     Active Substance: LITHIUM
     Indication: Bipolar I disorder
     Dosage: UNK, DAY 45 OF HOSPITALIZATION
     Route: 065
  2. LITHIUM [Interacting]
     Active Substance: LITHIUM
     Indication: Depression
     Dosage: 450 MILLIGRAM, OD (DOSE WAS GRADUALLY INCREASED TO 450 MG IN THE EVENING BY DAY 50)
     Route: 065
  3. LITHIUM [Interacting]
     Active Substance: LITHIUM
     Dosage: 300 MILLIGRAM, QD (ON DAY 67)
     Route: 065
  4. CLOZAPINE [Interacting]
     Active Substance: CLOZAPINE
     Indication: Bipolar I disorder
     Dosage: 125 MILLIGRAM, OD (DOSE GRADUALLY INCREASED TO 75 MG IN THE MORNING AND 125 MG IN THE EVENING)
     Route: 065
  5. CLOZAPINE [Interacting]
     Active Substance: CLOZAPINE
     Indication: Depression
     Dosage: 75 MILLIGRAM, OD (DOSE GRADUALLY INCREASED TO 75 MG IN THE MORNING AND 125 MG IN THE EVENING)
     Route: 065
  6. CLOZAPINE [Interacting]
     Active Substance: CLOZAPINE
     Dosage: 25 MILLIGRAM, OD (25 MG IN THE MORNING AND 50 MG IN THE EVENING)
     Route: 065
  7. CLOZAPINE [Interacting]
     Active Substance: CLOZAPINE
     Dosage: 75 MILLIGRAM, OD (DOSE GRADUALLY INCREASED TO 75 MG IN THE MORNING AND 125 MG IN THE EVENING)
     Route: 065
  8. CLOZAPINE [Interacting]
     Active Substance: CLOZAPINE
     Dosage: 50 MILLIGRAM, OD (25 MG IN THE MORNING AND 50 MG IN THE EVENING)
     Route: 065
  9. CLOZAPINE [Interacting]
     Active Substance: CLOZAPINE
     Dosage: 125 MILLIGRAM, OD (DOSE GRADUALLY INCREASED TO 75 MG IN THE MORNING AND 125 MG IN THE EVENING)
     Route: 065
  10. CLOZAPINE [Interacting]
     Active Substance: CLOZAPINE
     Dosage: 75 MILLIGRAM, OD (DOSE GRADUALLY INCREASED TO 75 MG IN THE MORNING AND 125 MG IN THE EVENING)
     Route: 065
  11. CLOZAPINE [Interacting]
     Active Substance: CLOZAPINE
     Dosage: UNK, DAY 14 OF HOSPITALIZATION
     Route: 065
  12. CLOZAPINE [Interacting]
     Active Substance: CLOZAPINE
     Dosage: 50 MILLIGRAM, BID (TWICE DAILY)
     Route: 065

REACTIONS (4)
  - Drug interaction [Unknown]
  - Myoclonus [Recovered/Resolved]
  - Urinary incontinence [Unknown]
  - Toxicity to various agents [Unknown]
